FAERS Safety Report 8539272-0 (Version None)
Quarter: 2012Q3

REPORT INFORMATION
  Report Type: 
  Country: None (occurrence: None)
  Receive Date: 20120726
  Receipt Date: 20120720
  Transmission Date: 20120928
  Serious: Yes (Hospitalization)
  Sender: FDA-Public Use
  Company Number: FR-PFIZER INC-2012175601

PATIENT
  Age: 3 Year
  Sex: Male
  Weight: 15.8 kg

DRUGS (2)
  1. ADVIL [Suspect]
     Indication: PYREXIA
     Dosage: UNK
     Route: 048
     Dates: start: 20120614, end: 20120614
  2. INFANRIX QUINTA [Suspect]
     Indication: IMMUNISATION
     Dosage: UNK
     Dates: start: 20120613, end: 20120613

REACTIONS (1)
  - CELLULITIS [None]
